FAERS Safety Report 7215404-1 (Version None)
Quarter: 2011Q1

REPORT INFORMATION
  Report Type: 
  Country: None (occurrence: None)
  Receive Date: 20110105
  Receipt Date: 20110105
  Transmission Date: 20110831
  Serious: Yes (Hospitalization)
  Sender: FDA-Public Use
  Company Number: None

PATIENT
  Sex: Male
  Weight: 113.9 kg

DRUGS (4)
  1. PROMETHAZINE-CODEINE COUGH SYRUP [Concomitant]
  2. TAXOL [Suspect]
     Dosage: 464 MG
     Dates: end: 20101206
  3. CARBOPLATIN [Suspect]
     Dosage: 767 MG
     Dates: end: 20101206
  4. COMBIVENT [Concomitant]

REACTIONS (7)
  - ELECTROLYTE IMBALANCE [None]
  - ASTHMA [None]
  - HYPOKALAEMIA [None]
  - DYSPNOEA [None]
  - FATIGUE [None]
  - PRODUCTIVE COUGH [None]
  - HYPOMAGNESAEMIA [None]
